FAERS Safety Report 6443475-9 (Version None)
Quarter: 2009Q4

REPORT INFORMATION
  Report Type: 
  Country: None (occurrence: None)
  Receive Date: 20091117
  Receipt Date: 20091112
  Transmission Date: 20100525
  Serious: Yes (Hospitalization, Other)
  Sender: FDA-Public Use
  Company Number: IN-ROXANE LABORATORIES, INC.-2009-RO-01162RO

PATIENT
  Age: 27 Year
  Sex: Male

DRUGS (7)
  1. LITHIUM CARBONATE [Suspect]
     Indication: BIPOLAR DISORDER
     Dosage: 900 MG
  2. LITHIUM CARBONATE [Suspect]
     Dosage: 1200 MG
  3. LITHIUM CARBONATE [Suspect]
     Dosage: 1500 MG
  4. LITHIUM CARBONATE [Suspect]
     Dosage: 1350 MG
  5. HALOPERIDOL [Suspect]
     Indication: BIPOLAR DISORDER
     Dosage: 10 MG
  6. TRIHEXYPHENYDYL [Suspect]
     Indication: BIPOLAR DISORDER
     Dosage: 4 MG
  7. VALPROATE SODIUM [Concomitant]
     Indication: BIPOLAR DISORDER

REACTIONS (4)
  - ANTIPSYCHOTIC DRUG LEVEL INCREASED [None]
  - DRUG INEFFECTIVE [None]
  - HEART RATE IRREGULAR [None]
  - SINUS BRADYCARDIA [None]
